FAERS Safety Report 4827903-8 (Version None)
Quarter: 2005Q4

REPORT INFORMATION
  Report Type: 
  Country: None (occurrence: None)
  Receive Date: 20051114
  Receipt Date: 20051114
  Transmission Date: 20060501
  Serious: No
  Sender: FDA-Public Use
  Company Number: None

PATIENT

DRUGS (2)
  1. CITALOPRAM   40 MG  DR. REDDY [Suspect]
     Indication: OBSESSIVE-COMPULSIVE DISORDER
  2. CITALOPRAM  20 MG  DR. REDDY [Suspect]
     Indication: OBSESSIVE-COMPULSIVE DISORDER

REACTIONS (5)
  - DIZZINESS [None]
  - DRUG INEFFECTIVE [None]
  - DRUG WITHDRAWAL SYNDROME [None]
  - INFLUENZA LIKE ILLNESS [None]
  - THERAPEUTIC RESPONSE UNEXPECTED WITH DRUG SUBSTITUTION [None]
